FAERS Safety Report 18618632 (Version 1)
Quarter: 2020Q4

REPORT INFORMATION
  Report Type: Spontaneous
  Country: DE (occurrence: DE)
  Receive Date: 20201215
  Receipt Date: 20201215
  Transmission Date: 20210114
  Serious: Yes (Other)
  Sender: FDA-Public Use
  Company Number: NVSC2020DE325971

PATIENT
  Age: 60 Year
  Sex: Male

DRUGS (5)
  1. ESOMEPRAZOL [Concomitant]
     Active Substance: ESOMEPRAZOLE
     Indication: GASTRITIS
     Dosage: 40 MG,QD
     Route: 048
     Dates: start: 20200807
  2. TELMISARTAN. [Concomitant]
     Active Substance: TELMISARTAN
     Indication: HYPERTENSION
     Dosage: 80 MG,QD
     Route: 048
     Dates: start: 20200115
  3. EVEROLIMUS. [Suspect]
     Active Substance: EVEROLIMUS
     Indication: METASTATIC RENAL CELL CARCINOMA
     Dosage: 5 MG,QD
     Route: 048
     Dates: start: 20200702
  4. KISPLYX [Suspect]
     Active Substance: LENVATINIB
     Dosage: 10 MG,QD
     Route: 048
     Dates: start: 20200702
  5. KISPLYX [Suspect]
     Active Substance: LENVATINIB
     Indication: METASTATIC RENAL CELL CARCINOMA
     Dosage: 18 MG, QD
     Route: 048
     Dates: start: 202007

REACTIONS (5)
  - Hypocalcaemia [Not Recovered/Not Resolved]
  - Thrombocytopenia [Recovering/Resolving]
  - Diarrhoea [Not Recovered/Not Resolved]
  - Hypothyroidism [Not Recovered/Not Resolved]
  - Hypomagnesaemia [Not Recovered/Not Resolved]

NARRATIVE: CASE EVENT DATE: 202007
